FAERS Safety Report 7854975 (Version 5)
Quarter: 2018Q3

REPORT INFORMATION
  Report Type: Spontaneous
  Country: US (occurrence: US)
  Receive Date: 20110314
  Receipt Date: 20180921
  Transmission Date: 20181010
  Serious: Yes (Hospitalization, Other)
  Sender: FDA-Public Use
  Company Number: US-ASTRAZENECA-2011SE12160

PATIENT
  Age: 825 Month
  Sex: Female
  Weight: 72.6 kg

DRUGS (32)
  1. SEROQUEL [Suspect]
     Active Substance: QUETIAPINE FUMARATE
     Indication: BIPOLAR DISORDER
     Dosage: 50 MG, 1 IN THE AM, AT NOON, AT 3PM AND 2 AT BEDTIME
     Route: 048
     Dates: start: 2001
  2. SYMBICORT [Suspect]
     Active Substance: BUDESONIDE\FORMOTEROL FUMARATE DIHYDRATE
     Indication: ASTHMA
     Dosage: 160/4.5 MCG, 2 PUFFS BID
     Route: 055
  3. CLONIDINE. [Concomitant]
     Active Substance: CLONIDINE
  4. LODRANE D [Concomitant]
     Active Substance: BROMPHENIRAMINE MALEATE\PSEUDOEPHEDRINE HYDROCHLORIDE
     Dosage: DAILY
  5. REMERON GENERIC [Concomitant]
  6. CYMBALTA [Concomitant]
     Active Substance: DULOXETINE HYDROCHLORIDE
  7. MIRTAZAPINE. [Concomitant]
     Active Substance: MIRTAZAPINE
     Indication: SLEEP DISORDER
     Route: 048
  8. SYMBICORT [Suspect]
     Active Substance: BUDESONIDE\FORMOTEROL FUMARATE DIHYDRATE
     Indication: ASTHMA
     Dosage: 1 PUFF, BID
     Route: 055
     Dates: start: 20130624
  9. SEROQUEL [Suspect]
     Active Substance: QUETIAPINE FUMARATE
     Indication: PANIC ATTACK
     Dosage: 50 MG, 1 IN THE AM, AT NOON, AT 3PM AND 2 AT BEDTIME
     Route: 048
     Dates: start: 2001
  10. RHINOCORT AQUA [Concomitant]
     Active Substance: BUDESONIDE
  11. VITAMIN E [Concomitant]
     Active Substance: .ALPHA.-TOCOPHEROL
  12. NORCO [Concomitant]
     Active Substance: ACETAMINOPHEN\HYDROCODONE BITARTRATE
  13. SEROQUEL [Suspect]
     Active Substance: QUETIAPINE FUMARATE
     Indication: POST-TRAUMATIC STRESS DISORDER
     Dosage: 50 MG, 1 IN THE AM, AT NOON, AT 3PM AND 2 AT BEDTIME
     Route: 048
     Dates: start: 2001
  14. C?1000 PLUS BIOFLAVONOIDS [Concomitant]
  15. LUTEIN VISION [Concomitant]
  16. SECTRAL [Concomitant]
     Active Substance: ACEBUTOLOL HYDROCHLORIDE
  17. CLONAZEPAM. [Concomitant]
     Active Substance: CLONAZEPAM
     Dosage: 0.5MG UNKNOWN
  18. QUINAPRIL HYDROCHLORIDE. [Concomitant]
     Active Substance: QUINAPRIL HYDROCHLORIDE
  19. SOMA [Concomitant]
     Active Substance: CARISOPRODOL
  20. NEXIUM [Suspect]
     Active Substance: ESOMEPRAZOLE MAGNESIUM
     Indication: GASTRIC DISORDER
     Route: 048
  21. NEXIUM [Suspect]
     Active Substance: ESOMEPRAZOLE MAGNESIUM
     Indication: GASTRIC DISORDER
     Route: 048
  22. VENTOLIN [Concomitant]
     Active Substance: ALBUTEROL SULFATE
     Dosage: PRN
  23. BETACAROTENE [Concomitant]
     Active Substance: .BETA.-CAROTENE
  24. DILTIAZEM. [Concomitant]
     Active Substance: DILTIAZEM
  25. TEKTURNA [Concomitant]
     Active Substance: ALISKIREN HEMIFUMARATE
  26. LYRICA [Concomitant]
     Active Substance: PREGABALIN
  27. ENABLEX [Concomitant]
     Active Substance: DARIFENACIN HYDROBROMIDE
  28. SINGULAIR [Concomitant]
     Active Substance: MONTELUKAST SODIUM
     Dosage: DAILY
  29. OMEPRAZOLE. [Suspect]
     Active Substance: OMEPRAZOLE
     Indication: GASTROOESOPHAGEAL REFLUX DISEASE
     Route: 065
  30. SEROQUEL [Suspect]
     Active Substance: QUETIAPINE FUMARATE
     Indication: BIPOLAR DISORDER
     Dosage: 50 MG, 1 IN THE AM, AT NOON, AT 3PM AND 2 AT BEDTIME
     Route: 048
     Dates: start: 2001
  31. AMITRIPTYLINE [Concomitant]
     Active Substance: AMITRIPTYLINE
  32. PRADAXA [Concomitant]
     Active Substance: DABIGATRAN ETEXILATE MESYLATE
     Indication: HEART RATE IRREGULAR
     Dates: start: 2010

REACTIONS (10)
  - Diabetes mellitus [Unknown]
  - Foot fracture [Unknown]
  - Weight decreased [Unknown]
  - Pneumonia [Unknown]
  - Drug dose omission [Unknown]
  - Hand fracture [Unknown]
  - Heart rate irregular [Unknown]
  - Bronchitis [Unknown]
  - Intentional product misuse [Unknown]
  - Malaise [Unknown]

NARRATIVE: CASE EVENT DATE: 201011
